FAERS Safety Report 9028488 (Version 3)
Quarter: 2013Q1

REPORT INFORMATION
  Report Type: Spontaneous
  Country: US (occurrence: US)
  Receive Date: 20130124
  Receipt Date: 20130129
  Transmission Date: 20140127
  Serious: No
  Sender: FDA-Public Use
  Company Number: US-009507513-1301USA010712

PATIENT
  Age: 77 Year
  Sex: Female

DRUGS (2)
  1. ASMANEX TWISTHALER [Suspect]
     Indication: ASTHMA
     Dosage: 220 MICROGRAM, QD
     Route: 055
     Dates: start: 2008, end: 20130120
  2. ASMANEX TWISTHALER [Suspect]
     Indication: COUGH

REACTIONS (3)
  - Palpitations [Recovered/Resolved]
  - Off label use [Unknown]
  - Product quality issue [Unknown]
